FAERS Safety Report 5898735-7 (Version None)
Quarter: 2008Q3

REPORT INFORMATION
  Report Type: 
  Country: None (occurrence: None)
  Receive Date: 20080925
  Receipt Date: 20080513
  Transmission Date: 20090109
  Serious: Yes (Hospitalization)
  Sender: FDA-Public Use
  Company Number: A0727706A

PATIENT
  Age: 54 Year
  Sex: Male

DRUGS (4)
  1. WELLBUTRIN XL [Suspect]
     Indication: DEPRESSION
     Route: 048
     Dates: start: 20070501
  2. METOPROLOL TARTRATE [Concomitant]
  3. XANAX [Concomitant]
  4. ASPIRIN [Concomitant]

REACTIONS (3)
  - AGITATION [None]
  - CEREBROVASCULAR ACCIDENT [None]
  - DEPRESSION [None]
